FAERS Safety Report 17584130 (Version 2)
Quarter: 2020Q2

REPORT INFORMATION
  Report Type: Spontaneous
  Country: US (occurrence: US)
  Receive Date: 20200326
  Receipt Date: 20200408
  Transmission Date: 20200713
  Serious: Yes (Hospitalization)
  Sender: FDA-Public Use
  Company Number: US-BIOGEN-2020BI00851949

PATIENT
  Sex: Female

DRUGS (1)
  1. TECFIDERA [Suspect]
     Active Substance: DIMETHYL FUMARATE
     Indication: MULTIPLE SCLEROSIS
     Route: 065
     Dates: start: 20151102

REACTIONS (9)
  - Limb injury [Recovered/Resolved]
  - Hypoaesthesia [Recovered/Resolved]
  - Muscle tone disorder [Not Recovered/Not Resolved]
  - Malaise [Recovered/Resolved]
  - Gait inability [Unknown]
  - Haematemesis [Unknown]
  - Vomiting [Recovered/Resolved]
  - Diarrhoea [Recovered/Resolved]
  - Iatrogenic injury [Recovered/Resolved]

NARRATIVE: CASE EVENT DATE: 2019
